FAERS Safety Report 26057480 (Version 1)
Quarter: 2025Q4

REPORT INFORMATION
  Report Type: Spontaneous
  Country: US (occurrence: US)
  Receive Date: 20251118
  Receipt Date: 20251118
  Transmission Date: 20260119
  Serious: Yes (Other)
  Sender: AMNEAL
  Company Number: US-AMNEAL PHARMACEUTICALS-2024-AMRX-04587

PATIENT
  Sex: Female

DRUGS (1)
  1. ISOTRETINOIN [Suspect]
     Active Substance: ISOTRETINOIN
     Indication: Product used for unknown indication
     Dosage: 30 MILLIGRAM
     Route: 065

REACTIONS (7)
  - Epistaxis [Unknown]
  - Headache [Unknown]
  - Eye swelling [Unknown]
  - Dry eye [Unknown]
  - Back pain [Unknown]
  - Lip dry [Unknown]
  - Dry skin [Unknown]
